FAERS Safety Report 8215092-1 (Version None)
Quarter: 2012Q1

REPORT INFORMATION
  Report Type: 
  Country: None (occurrence: None)
  Receive Date: 20120316
  Receipt Date: 20120313
  Transmission Date: 20120608
  Serious: Yes (Death, Hospitalization)
  Sender: FDA-Public Use
  Company Number: PHHY2012GB020747

PATIENT
  Age: 71 Year
  Sex: Male
  Weight: 79.4 kg

DRUGS (4)
  1. WARFARIN SODIUM [Suspect]
     Indication: ATRIAL FIBRILLATION
  2. TRABECTEDIN [Suspect]
     Indication: LIPOSARCOMA
     Dosage: 1200 UG/M2, UNK
     Route: 042
     Dates: start: 20120105, end: 20120106
  3. TRABECTEDIN [Suspect]
     Dosage: 1200 UG/M2, UNK
     Route: 042
     Dates: start: 20120126, end: 20120127
  4. CORTICOSTEROIDS [Concomitant]
     Indication: PREMEDICATION

REACTIONS (19)
  - TUMOUR HAEMORRHAGE [None]
  - FATIGUE [None]
  - BLOOD ALKALINE PHOSPHATASE INCREASED [None]
  - PANCYTOPENIA [None]
  - HEPATIC ENZYME INCREASED [None]
  - TACHYCARDIA [None]
  - WHITE BLOOD CELL COUNT DECREASED [None]
  - PULMONARY OEDEMA [None]
  - NEUTROPENIC SEPSIS [None]
  - DEATH [None]
  - CHILLS [None]
  - BLOOD BILIRUBIN INCREASED [None]
  - ALANINE AMINOTRANSFERASE INCREASED [None]
  - HYPOTENSION [None]
  - THROMBOCYTOPENIA [None]
  - OSTEITIS DEFORMANS [None]
  - GASTROINTESTINAL HAEMORRHAGE [None]
  - ANAEMIA [None]
  - CONDITION AGGRAVATED [None]
